FAERS Safety Report 6122958-5 (Version None)
Quarter: 2009Q1

REPORT INFORMATION
  Report Type: 
  Country: None (occurrence: None)
  Receive Date: 20090318
  Receipt Date: 20090305
  Transmission Date: 20090719
  Serious: Yes (Other)
  Sender: FDA-Public Use
  Company Number: BR-ROCHE-619220

PATIENT
  Age: 32 Year
  Sex: Female

DRUGS (2)
  1. ROACUTAN [Suspect]
     Indication: ACNE
     Dosage: STOP DATE: 2009
     Route: 048
     Dates: start: 20081201
  2. TAMISA [Concomitant]
     Indication: CONTRACEPTION
     Dosage: DRUG NAME: TAMISA 20

REACTIONS (1)
  - EXTRASYSTOLES [None]
